FAERS Safety Report 6298092-0 (Version None)
Quarter: 2009Q3

REPORT INFORMATION
  Report Type: 
  Country: None (occurrence: None)
  Receive Date: 20090804
  Receipt Date: 20090804
  Transmission Date: 20100115
  Serious: No
  Sender: FDA-Public Use
  Company Number: None

PATIENT
  Sex: Female
  Weight: 72.5755 kg

DRUGS (1)
  1. INTRON A [Suspect]
     Dosage: 18MIU, 3 TIMES WEEKLY, SQ
     Route: 058
     Dates: start: 20090101, end: 20090717

REACTIONS (1)
  - HYPOACUSIS [None]
